FAERS Safety Report 23748674 (Version 1)
Quarter: 2024Q2

REPORT INFORMATION
  Report Type: Spontaneous
  Country: FR (occurrence: FR)
  Receive Date: 20240416
  Receipt Date: 20240416
  Transmission Date: 20240716
  Serious: Yes (Hospitalization)
  Sender: FDA-Public Use
  Company Number: None

PATIENT
  Age: 66 Year
  Sex: Female

DRUGS (3)
  1. FLUOXETINE HYDROCHLORIDE [Suspect]
     Active Substance: FLUOXETINE HYDROCHLORIDE
     Indication: Product used for unknown indication
     Dosage: CHLORHYDRATE DE FLUOXETINE
     Route: 048
     Dates: start: 2022
  2. VABYSMO [Suspect]
     Active Substance: FARICIMAB\FARICIMAB-SVOA
     Indication: Age-related macular degeneration
     Dosage: 2 TO 3 SUPPOSITORIES OF 300MG PER DAY/ SOLUTION INJECTABLE
     Route: 031
     Dates: start: 202401, end: 20240207
  3. ASPIRIN [Suspect]
     Active Substance: ASPIRIN
     Indication: Headache
     Dosage: ASPIRINE
     Route: 048
     Dates: start: 20240217, end: 20240217

REACTIONS (2)
  - Meningorrhagia [Recovered/Resolved]
  - Cerebral microinfarction [Recovered/Resolved]

NARRATIVE: CASE EVENT DATE: 20240218
